FAERS Safety Report 12594361 (Version 1)
Quarter: 2016Q3

REPORT INFORMATION
  Report Type: Spontaneous
  Country: US (occurrence: US)
  Receive Date: 20160726
  Receipt Date: 20160726
  Transmission Date: 20161109
  Serious: Yes (Hospitalization)
  Sender: FDA-Public Use
  Company Number: US-UNITED THERAPEUTICS-UNT-2015-016627

PATIENT
  Age: 70 Year
  Sex: Female
  Weight: 88.89 kg

DRUGS (5)
  1. REMODULIN [Suspect]
     Active Substance: TREPROSTINIL
     Dosage: 0.023 ?G/KG, CONTINUING
     Route: 058
     Dates: start: 20150903
  2. XARELTO [Suspect]
     Active Substance: RIVAROXABAN
     Indication: PRODUCT USED FOR UNKNOWN INDICATION
     Route: 065
  3. ADCIRCA [Suspect]
     Active Substance: TADALAFIL
     Indication: PRODUCT USED FOR UNKNOWN INDICATION
     Dosage: UNK
     Route: 065
     Dates: start: 20151229
  4. REMODULIN [Suspect]
     Active Substance: TREPROSTINIL
     Indication: PULMONARY HYPERTENSION
     Dosage: 0.023 ?G/KG, CONTINUING
     Route: 058
     Dates: start: 20150820
  5. REMODULIN [Suspect]
     Active Substance: TREPROSTINIL
     Dosage: 0.025 ?G/KG, CONTINUING
     Route: 058

REACTIONS (31)
  - Gingival disorder [Unknown]
  - Infusion site infection [Unknown]
  - Vomiting [Unknown]
  - Gingival recession [Unknown]
  - Malaise [Unknown]
  - Upper-airway cough syndrome [Unknown]
  - Tooth disorder [Unknown]
  - Influenza like illness [Unknown]
  - Gingival bleeding [Unknown]
  - Headache [Unknown]
  - Infusion site haemorrhage [Recovering/Resolving]
  - Bruxism [Unknown]
  - Pain [Unknown]
  - Salivary hypersecretion [Unknown]
  - Dehydration [Unknown]
  - Palpitations [Unknown]
  - Hypoaesthesia oral [Unknown]
  - Infusion site reaction [Unknown]
  - Abdominal discomfort [Unknown]
  - Dyspnoea [Unknown]
  - Nasal dryness [Unknown]
  - Increased viscosity of upper respiratory secretion [Unknown]
  - Diarrhoea [Unknown]
  - Ocular discomfort [Unknown]
  - Bleeding time prolonged [Unknown]
  - Infusion site bruising [Unknown]
  - Haemorrhage [Unknown]
  - Therapy non-responder [Unknown]
  - Flushing [Not Recovered/Not Resolved]
  - Nausea [Not Recovered/Not Resolved]
  - Gastrooesophageal reflux disease [Unknown]

NARRATIVE: CASE EVENT DATE: 201511
